FAERS Safety Report 7582851-8 (Version None)
Quarter: 2011Q2

REPORT INFORMATION
  Report Type: 
  Country: None (occurrence: None)
  Receive Date: 20110630
  Receipt Date: 20110623
  Transmission Date: 20111010
  Serious: Yes (Life-Threatening, Other)
  Sender: FDA-Public Use
  Company Number: FR-BAYER-2011-046209

PATIENT
  Age: 43 Year
  Sex: Male

DRUGS (5)
  1. LYRICA [Suspect]
     Indication: NEURALGIA
     Dosage: DAILY DOSE 150 MG
     Route: 048
     Dates: start: 20110512, end: 20110521
  2. ZOMETA [Concomitant]
     Indication: HYPERCALCAEMIA
     Dosage: 1 DF, Q1MON
     Dates: start: 20100701, end: 20110509
  3. EVEROLIMUS [Concomitant]
     Dosage: UNK
     Dates: end: 20110512
  4. DURAGESIC-100 [Concomitant]
     Indication: PAIN
     Dosage: 75 ?G/ 24H
     Route: 062
     Dates: start: 20100701
  5. NEXAVAR [Suspect]
     Indication: RENAL CANCER METASTATIC
     Dosage: 400 MG, BID
     Route: 048
     Dates: start: 20110514, end: 20110523

REACTIONS (6)
  - RASH [None]
  - URTICARIA [None]
  - PRURITUS [None]
  - EYELID OEDEMA [None]
  - ANGIOEDEMA [None]
  - FACE OEDEMA [None]
